FAERS Safety Report 15255113 (Version 1)
Quarter: 2018Q3

REPORT INFORMATION
  Report Type: Spontaneous
  Country: US (occurrence: US)
  Receive Date: 20180808
  Receipt Date: 20180808
  Transmission Date: 20181010
  Serious: No
  Sender: FDA-Public Use
  Company Number: US-PFIZER INC-2018316718

PATIENT
  Sex: Male

DRUGS (1)
  1. ADVIL [Suspect]
     Active Substance: IBUPROFEN
     Indication: SINUS HEADACHE
     Dosage: 4 DF, UNK

REACTIONS (2)
  - Intentional product misuse [Unknown]
  - Drug ineffective [Unknown]
